FAERS Safety Report 5484931-X (Version None)
Quarter: 2007Q4

REPORT INFORMATION
  Report Type: 
  Country: None (occurrence: None)
  Receive Date: 20071011
  Receipt Date: 20071001
  Transmission Date: 20080405
  Serious: Yes (Other)
  Sender: FDA-Public Use
  Company Number: 238373K07USA

PATIENT
  Age: 37 Year
  Sex: Female
  Weight: 99.7913 kg

DRUGS (8)
  1. REBIF [Suspect]
     Indication: MULTIPLE SCLEROSIS
     Dosage: 44 MCG, 3 IN 1 WEEKS, SUBCUTANEOUS
     Route: 058
     Dates: start: 20070501
  2. VITAMIN B12 [Concomitant]
  3. BIRTH CONTROL PILLS (ORAL CONTRACEPTIVE NOS) [Concomitant]
  4. GABAPENTIN [Concomitant]
  5. SINGULAIR (MONTELUKAST /01362601/ [Concomitant]
  6. PROVIGIL [Concomitant]
  7. LEXAPRO [Concomitant]
  8. MOTRIN [Concomitant]

REACTIONS (4)
  - CONDITION AGGRAVATED [None]
  - ENDOMETRIOSIS [None]
  - MENORRHAGIA [None]
  - UTERINE LEIOMYOMA [None]
